FAERS Safety Report 8774837 (Version 3)
Quarter: 2012Q4

REPORT INFORMATION
  Report Type: Report from Study
  Country: MX (occurrence: MX)
  Receive Date: 20120910
  Receipt Date: 20121002
  Transmission Date: 20130627
  Serious: Yes (Hospitalization)
  Sender: FDA-Public Use
  Company Number: MX-009507513-1208MEX000671

PATIENT
  Age: 53 Year
  Sex: Female
  Weight: 66.2 kg

DRUGS (16)
  1. BLINDED PLACEBO [Suspect]
     Indication: PROPHYLAXIS
     Dosage: .5 ml
     Route: 058
     Dates: start: 20120629, end: 20120629
  2. BLINDED POST TRIAL THERAPY [Suspect]
     Indication: PROPHYLAXIS
     Dosage: .5 ml
     Route: 058
     Dates: start: 20120629, end: 20120629
  3. BLINDED PRE TRIAL THERAPY [Suspect]
     Indication: PROPHYLAXIS
     Dosage: .5 ml
     Route: 058
     Dates: start: 20120629, end: 20120629
  4. BLINDED VARICELLA-ZOSTER VIRUS VACCINE INACTIVATED (OKA/MERCK) [Suspect]
     Indication: PROPHYLAXIS
     Dosage: .5 ml
     Route: 058
     Dates: start: 20120629, end: 20120629
  5. BLINDED PLACEBO [Suspect]
     Dosage: .5 ml
     Route: 058
     Dates: start: 20120806, end: 20120806
  6. BLINDED POST TRIAL THERAPY [Suspect]
     Dosage: .5 ml
     Route: 058
     Dates: start: 20120806, end: 20120806
  7. BLINDED PRE TRIAL THERAPY [Suspect]
     Dosage: .5 ml
     Route: 058
     Dates: start: 20120806, end: 20120806
  8. BLINDED VARICELLA-ZOSTER VIRUS VACCINE INACTIVATED (OKA/MERCK) [Suspect]
     Dosage: .5 ml
     Route: 058
     Dates: start: 20120806, end: 20120806
  9. BLINDED PLACEBO [Suspect]
     Dosage: .5 ml
     Route: 058
     Dates: start: 20120906, end: 20120906
  10. BLINDED POST TRIAL THERAPY [Suspect]
     Dosage: .5 ml
     Route: 058
     Dates: start: 20120906, end: 20120906
  11. BLINDED PRE TRIAL THERAPY [Suspect]
     Dosage: .5 ml
     Route: 058
     Dates: start: 20120906, end: 20120906
  12. BLINDED VARICELLA-ZOSTER VIRUS VACCINE INACTIVATED (OKA/MERCK) [Suspect]
     Dosage: .5 ml
     Route: 058
     Dates: start: 20120906, end: 20120906
  13. DEXAMETHASONE [Suspect]
     Indication: STEROID WITHDRAWAL SYNDROME
     Dosage: 40 mg, qod
     Route: 048
     Dates: start: 20120525, end: 20120620
  14. CYCLOPHOSPHAMIDE [Concomitant]
     Indication: CHEMOTHERAPY
     Dosage: 1 g, qd
     Route: 042
     Dates: start: 20120702, end: 20120703
  15. MELPHALAN [Concomitant]
     Indication: CHEMOTHERAPY
     Dosage: 160 mg, qd
     Route: 048
     Dates: start: 20120702, end: 20120703
  16. OMEPRAZOLE [Concomitant]
     Indication: PROPHYLAXIS
     Dosage: 20 mg, qd
     Route: 048
     Dates: start: 20120702, end: 20120705

REACTIONS (1)
  - Vomiting [Recovered/Resolved]
